FAERS Safety Report 4376235-3 (Version None)
Quarter: 2004Q2

REPORT INFORMATION
  Report Type: 
  Country: None (occurrence: None)
  Receive Date: 20040608
  Receipt Date: 20030325
  Transmission Date: 20050107
  Serious: Yes (Hospitalization)
  Sender: FDA-Public Use
  Company Number: 200311005BCC

PATIENT
  Age: 25 Year
  Sex: Female
  Weight: 52.1637 kg

DRUGS (1)
  1. ALEVE [Suspect]
     Indication: INTENTIONAL SELF-INJURY
     Dosage: 2640-5280 MG, QD, ORAL
     Route: 048
     Dates: start: 20030324, end: 20030325

REACTIONS (1)
  - DYSPEPSIA [None]
